FAERS Safety Report 9631670 (Version 1)
Quarter: 2013Q4

REPORT INFORMATION
  Report Type: Spontaneous
  Country: US (occurrence: US)
  Receive Date: 20131018
  Receipt Date: 20131018
  Transmission Date: 20140711
  Serious: No
  Sender: FDA-Public Use
  Company Number: US-TEVA-438907USA

PATIENT
  Sex: Female
  Weight: 63.56 kg

DRUGS (3)
  1. QVAR [Suspect]
     Indication: ASTHMA
     Dosage: 40UG 2 PUFFS 4 TIMES A DAY
  2. QVAR [Suspect]
     Indication: CHRONIC OBSTRUCTIVE PULMONARY DISEASE
     Dosage: 1 PUFF IN MORNING AND 1 PUFF IN EVENING
  3. PREDNISONE [Suspect]

REACTIONS (10)
  - Lipoma [Not Recovered/Not Resolved]
  - Throat tightness [Not Recovered/Not Resolved]
  - Aphonia [Not Recovered/Not Resolved]
  - Heart rate increased [Not Recovered/Not Resolved]
  - Local swelling [Not Recovered/Not Resolved]
  - Flushing [Not Recovered/Not Resolved]
  - Chest pain [Not Recovered/Not Resolved]
  - Pain [Not Recovered/Not Resolved]
  - Back pain [Not Recovered/Not Resolved]
  - Vomiting [Unknown]
